FAERS Safety Report 6966393-6 (Version None)
Quarter: 2010Q3

REPORT INFORMATION
  Report Type: 
  Country: None (occurrence: None)
  Receive Date: 20100903
  Receipt Date: 20100827
  Transmission Date: 20110219
  Serious: Yes (Other)
  Sender: FDA-Public Use
  Company Number: CA-AMGEN-QUU429292

PATIENT
  Sex: Female
  Weight: 47.2 kg

DRUGS (4)
  1. ENBREL [Suspect]
     Indication: RHEUMATOID ARTHRITIS
     Route: 058
     Dates: start: 20031126
  2. METHOTREXATE [Concomitant]
     Dates: start: 19900401
  3. PREDNISONE [Concomitant]
     Dates: start: 19800315
  4. SALAZOPYRIN [Concomitant]
     Dates: start: 20020420, end: 20081112

REACTIONS (1)
  - TRANSITIONAL CELL CARCINOMA [None]
